FAERS Safety Report 7008395-X (Version None)
Quarter: 2010Q3

REPORT INFORMATION
  Report Type: 
  Country: None (occurrence: None)
  Receive Date: 20100922
  Receipt Date: 20100913
  Transmission Date: 20110219
  Serious: Yes (Hospitalization)
  Sender: FDA-Public Use
  Company Number: B0672234A

PATIENT
  Sex: Female
  Weight: 45 kg

DRUGS (4)
  1. TYKERB [Suspect]
     Indication: BREAST CANCER
     Dosage: 1250MG PER DAY
     Route: 048
     Dates: start: 20091029, end: 20100122
  2. XELODA [Suspect]
     Indication: PRODUCT USED FOR UNKNOWN INDICATION
     Dosage: 2400MG PER DAY
     Route: 048
     Dates: start: 20091029, end: 20100122
  3. HALCION [Concomitant]
     Indication: INSOMNIA
     Route: 048
     Dates: end: 20091112
  4. PYDOXAL [Concomitant]
     Route: 048
     Dates: start: 20091029, end: 20100122

REACTIONS (2)
  - DIARRHOEA [None]
  - PYREXIA [None]
